FAERS Safety Report 4668986-8 (Version None)
Quarter: 2005Q2

REPORT INFORMATION
  Report Type: 
  Country: None (occurrence: None)
  Receive Date: 20050523
  Receipt Date: 20050509
  Transmission Date: 20051028
  Serious: Yes (Other)
  Sender: FDA-Public Use
  Company Number: FR-GLAXOSMITHKLINE-B0381005A

PATIENT
  Sex: Female

DRUGS (3)
  1. DEROXAT [Suspect]
     Dosage: 20MG TWICE PER DAY
     Route: 048
  2. TERCIAN [Concomitant]
     Dosage: 25MG PER DAY
     Route: 048
  3. TRANXENE [Concomitant]
     Dosage: 50MG PER DAY
     Route: 048

REACTIONS (4)
  - ANXIETY [None]
  - INTENTIONAL MISUSE [None]
  - SOMNOLENCE [None]
  - SUICIDAL IDEATION [None]
